FAERS Safety Report 10237650 (Version 1)
Quarter: 2014Q2

REPORT INFORMATION
  Report Type: Report from Study
  Country: CN (occurrence: CN)
  Receive Date: 20140616
  Receipt Date: 20140616
  Transmission Date: 20141212
  Serious: Yes (Hospitalization)
  Sender: FDA-Public Use
  Company Number: CN-ROCHE-1418447

PATIENT
  Sex: Female
  Weight: 61 kg

DRUGS (2)
  1. HERCEPTIN [Suspect]
     Indication: BREAST CANCER METASTATIC
     Dosage: INITIAL DOSE 390MG AND MAINTAINED DOSE 370MG
     Route: 041
     Dates: start: 201306
  2. XELODA [Suspect]
     Indication: BREAST CANCER METASTATIC
     Route: 065
     Dates: start: 201402

REACTIONS (4)
  - Metastases to central nervous system [Not Recovered/Not Resolved]
  - Metastases to lung [Unknown]
  - Hilar lymphadenopathy [Unknown]
  - Left ventricular dysfunction [Unknown]
